FAERS Safety Report 19668818 (Version 2)
Quarter: 2022Q3

REPORT INFORMATION
  Report Type: Report from Study
  Country: US (occurrence: US)
  Receive Date: 20210806
  Receipt Date: 20220914
  Transmission Date: 20221026
  Serious: Yes (Hospitalization, Other)
  Sender: FDA-Public Use
  Company Number: US-TAKEDA-2021TUS048466

PATIENT
  Age: 2 Year
  Sex: Male

DRUGS (10)
  1. TEDUGLUTIDE [Suspect]
     Active Substance: TEDUGLUTIDE
     Indication: Short-bowel syndrome
     Dosage: 0.6 MILLIGRAM, QD
     Route: 042
     Dates: start: 20200914
  2. TEDUGLUTIDE [Suspect]
     Active Substance: TEDUGLUTIDE
     Indication: Short-bowel syndrome
     Dosage: 0.6 MILLIGRAM, QD
     Route: 042
     Dates: start: 20200914
  3. TEDUGLUTIDE [Suspect]
     Active Substance: TEDUGLUTIDE
     Indication: Short-bowel syndrome
     Dosage: 0.6 MILLIGRAM, QD
     Route: 042
     Dates: start: 20200914
  4. TEDUGLUTIDE [Suspect]
     Active Substance: TEDUGLUTIDE
     Indication: Short-bowel syndrome
     Dosage: 0.6 MILLIGRAM, QD
     Route: 042
     Dates: start: 20200914
  5. CEFEPIME [Concomitant]
     Active Substance: CEFEPIME HYDROCHLORIDE
  6. VANCOMYCIN [Concomitant]
     Active Substance: VANCOMYCIN
  7. GENTAMICIN [Concomitant]
     Active Substance: GENTAMICIN
  8. LOPERAMIDE [Concomitant]
     Active Substance: LOPERAMIDE
  9. FAMOTIDINE [Concomitant]
     Active Substance: FAMOTIDINE
  10. HEPARIN [Concomitant]
     Active Substance: HEPARIN SODIUM

REACTIONS (1)
  - Sepsis [Recovered/Resolved]

NARRATIVE: CASE EVENT DATE: 20210712
